FAERS Safety Report 8007091-X (Version None)
Quarter: 2011Q4

REPORT INFORMATION
  Report Type: 
  Country: None (occurrence: None)
  Receive Date: 20111227
  Receipt Date: 20111215
  Transmission Date: 20120403
  Serious: No
  Sender: FDA-Public Use
  Company Number: US-JNJFOC-20111208167

PATIENT
  Sex: Male

DRUGS (5)
  1. TRAZODONE HCL [Concomitant]
     Route: 048
  2. INVEGA SUSTENNA [Suspect]
     Route: 030
     Dates: start: 20111119
  3. INVEGA SUSTENNA [Suspect]
     Indication: SCHIZOPHRENIA
     Route: 030
     Dates: start: 20111126
  4. COGENTIN [Concomitant]
     Route: 048
  5. DEPAKOTE [Concomitant]
     Route: 048

REACTIONS (1)
  - DRUG DOSE OMISSION [None]
